FAERS Safety Report 8375689-5 (Version None)
Quarter: 2012Q2

REPORT INFORMATION
  Report Type: 
  Country: None (occurrence: None)
  Receive Date: 20120522
  Receipt Date: 20120516
  Transmission Date: 20120825
  Serious: No
  Sender: FDA-Public Use
  Company Number: US-PFIZER INC-2012119988

PATIENT
  Sex: Female

DRUGS (1)
  1. SUTENT [Suspect]
     Indication: RENAL CANCER
     Dosage: 12.5 MG, 4X/DAY
     Route: 048
     Dates: start: 20120308

REACTIONS (2)
  - HAEMATURIA [None]
  - RENAL DISORDER [None]
